FAERS Safety Report 9711907 (Version 2)
Quarter: 2013Q4

REPORT INFORMATION
  Report Type: Spontaneous
  Country: US (occurrence: US)
  Receive Date: 20131126
  Receipt Date: 20131126
  Transmission Date: 20140711
  Serious: No
  Sender: FDA-Public Use
  Company Number: US-BRISTOL-MYERS SQUIBB COMPANY-18828855

PATIENT
  Age: 63 Year
  Sex: Male

DRUGS (1)
  1. BYDUREON [Suspect]
     Indication: TYPE 2 DIABETES MELLITUS
     Dosage: LOT#73258, EXP:DEC2013
     Route: 058

REACTIONS (2)
  - Injection site haemorrhage [Recovered/Resolved]
  - Constipation [Recovered/Resolved]
